FAERS Safety Report 6568784-4 (Version None)
Quarter: 2010Q1

REPORT INFORMATION
  Report Type: 
  Country: None (occurrence: None)
  Receive Date: 20100128
  Receipt Date: 20100113
  Transmission Date: 20100710
  Serious: Yes (Hospitalization)
  Sender: FDA-Public Use
  Company Number: 2009AC000206

PATIENT
  Age: 65 Year
  Sex: Male

DRUGS (18)
  1. DIGOXIN [Suspect]
     Dosage: 0.125 MG; PO
     Route: 048
     Dates: start: 20050101
  2. IINSULIN [Concomitant]
  3. LOVENOX [Concomitant]
  4. HUMALOG [Concomitant]
  5. CYMBALTA [Concomitant]
  6. CELLCEPT [Concomitant]
  7. ECOTRIN [Concomitant]
  8. PREDNISONE [Concomitant]
  9. LEVOTHYROXINE SODIUM [Concomitant]
  10. BACTRIM [Concomitant]
  11. LANTUS [Concomitant]
  12. TRILIPIX [Concomitant]
  13. NIASPAN [Concomitant]
  14. LISINOPRIL [Concomitant]
  15. PROGRAF [Concomitant]
  16. AMLODIPINE [Concomitant]
  17. PLAVIX [Concomitant]
  18. METOCLOPRAMIDE [Concomitant]

REACTIONS (17)
  - ACTIVITIES OF DAILY LIVING IMPAIRED [None]
  - ANHEDONIA [None]
  - ANXIETY [None]
  - ASTHENIA [None]
  - CARDIAC FAILURE CONGESTIVE [None]
  - CARDIOACTIVE DRUG LEVEL BELOW THERAPEUTIC [None]
  - CARDIOMYOPATHY [None]
  - DYSLIPIDAEMIA [None]
  - ECONOMIC PROBLEM [None]
  - HEART TRANSPLANT [None]
  - ISCHAEMIC CARDIOMYOPATHY [None]
  - LYMPHADENOPATHY MEDIASTINAL [None]
  - MULTIPLE INJURIES [None]
  - MUSCLE SPASMS [None]
  - ORTHOPNOEA [None]
  - PAIN [None]
  - RENAL FAILURE ACUTE [None]
